FAERS Safety Report 13777422 (Version 1)
Quarter: 2017Q3

REPORT INFORMATION
  Report Type: Spontaneous
  Country: FR (occurrence: FR)
  Receive Date: 20170721
  Receipt Date: 20170721
  Transmission Date: 20171127
  Serious: Yes (Hospitalization)
  Sender: FDA-Public Use
  Company Number: FR-PFM-2017-06274

PATIENT

DRUGS (19)
  1. ENDOXAN [Suspect]
     Active Substance: CYCLOPHOSPHAMIDE
     Dosage: METRONOMIC SCHEDULE
     Dates: start: 2015
  2. ERIBULIN MESILATE [Suspect]
     Active Substance: ERIBULIN
     Indication: BREAST CANCER
     Dosage: (CYCLE)
     Route: 042
     Dates: start: 2010, end: 2014
  3. PACLITAXEL. [Suspect]
     Active Substance: PACLITAXEL
     Indication: BREAST CANCER
     Dosage: (CYCLE)
     Route: 042
     Dates: start: 2010, end: 2014
  4. EXEMESTANE. [Suspect]
     Active Substance: EXEMESTANE
     Indication: BREAST CANCER
     Dosage: (CYCLE)
     Route: 042
     Dates: start: 2010, end: 2014
  5. FASLODEX [Suspect]
     Active Substance: FULVESTRANT
     Indication: BREAST CANCER
     Dosage: (CYCLE)
     Route: 042
     Dates: start: 2010, end: 2014
  6. PALBOCICLIB [Suspect]
     Active Substance: PALBOCICLIB
     Indication: BREAST CANCER
     Dosage: (CYCLE)
     Route: 048
  7. TASIGNA [Suspect]
     Active Substance: NILOTINIB
     Indication: BREAST CANCER
     Dosage: (CYCLE)
     Route: 048
  8. TAXOTERE [Suspect]
     Active Substance: DOCETAXEL
     Indication: BREAST CANCER
     Dosage: (CYCLE)
     Route: 042
     Dates: start: 2008
  9. DOXORUBICIN HYDROCHLORIDE. [Suspect]
     Active Substance: DOXORUBICIN HYDROCHLORIDE
     Indication: BREAST CANCER
     Dosage: 40 MG/M2 4 CYCLES IN TOTAL (CUMULATIVE DOSE: 160 MG / M2)
     Route: 042
     Dates: start: 2000
  10. AVASTIN [Suspect]
     Active Substance: BEVACIZUMAB
     Indication: BREAST CANCER
     Dosage: EVERY 3 WEEKS (CYCLE)
     Route: 042
     Dates: start: 2007
  11. EVEROLIMUS [Suspect]
     Active Substance: EVEROLIMUS
     Indication: BREAST CANCER
     Dosage: (CYCLE)
     Route: 042
     Dates: start: 2010, end: 2014
  12. TAMOXIFEN CITRATE. [Suspect]
     Active Substance: TAMOXIFEN CITRATE
     Indication: BREAST CANCER
     Dosage: (CYCLE)
     Route: 048
     Dates: start: 2014
  13. XELODA [Suspect]
     Active Substance: CAPECITABINE
     Indication: BREAST CANCER
     Dosage: (CYCLE)
     Route: 042
     Dates: start: 2008
  14. AROMASINE [Suspect]
     Active Substance: EXEMESTANE
     Indication: BREAST CANCER
     Dosage: (CYCLE)
     Route: 048
     Dates: start: 2009
  15. NAVELBINE [Suspect]
     Active Substance: VINORELBINE TARTRATE
     Indication: BREAST CANCER
     Dosage: CYCLE
     Route: 048
     Dates: start: 2010, end: 2014
  16. ENDOXAN [Suspect]
     Active Substance: CYCLOPHOSPHAMIDE
     Indication: BREAST CANCER
     Dosage: 750MG/M2 4 CYCLES IN TOTAL IN 2000
     Route: 042
     Dates: start: 2000
  17. FASLODEX [Suspect]
     Active Substance: FULVESTRANT
     Dosage: UNK
     Route: 042
     Dates: start: 2016
  18. TAMOXIFEN CITRATE. [Suspect]
     Active Substance: TAMOXIFEN CITRATE
     Dosage: UNK
     Route: 048
     Dates: start: 2000, end: 2003
  19. GEMCITABINE [Suspect]
     Active Substance: GEMCITABINE\GEMCITABINE HYDROCHLORIDE
     Indication: BREAST CANCER
     Dosage: (800 MG/M2, D1 D8 D21 )
     Route: 042
     Dates: start: 2017

REACTIONS (1)
  - Acute myeloid leukaemia [Unknown]

NARRATIVE: CASE EVENT DATE: 201702
